FAERS Safety Report 17296512 (Version 1)
Quarter: 2020Q1

REPORT INFORMATION
  Report Type: Report from Study
  Country: None (occurrence: US)
  Receive Date: 20200122
  Receipt Date: 20200122
  Transmission Date: 20200409
  Serious: Yes (Other)
  Sender: FDA-Public Use
  Company Number: US-ABBVIE-19K-163-2672161-00

PATIENT
  Age: 46 Year
  Sex: Female
  Weight: 52.21 kg

DRUGS (2)
  1. HUMIRA [Suspect]
     Active Substance: ADALIMUMAB
     Indication: OSTEOARTHRITIS
     Route: 058
     Dates: start: 2019
  2. HUMIRA [Suspect]
     Active Substance: ADALIMUMAB
     Indication: CROHN^S DISEASE
     Route: 058
     Dates: start: 20100306, end: 2014

REACTIONS (7)
  - Crohn^s disease [Unknown]
  - Abscess [Unknown]
  - Gastrointestinal fistula [Unknown]
  - Stoma creation [Unknown]
  - Vaginal fistula [Unknown]
  - General symptom [Unknown]
  - Arthritis [Unknown]
